FAERS Safety Report 9134418 (Version 3)
Quarter: 2014Q2

REPORT INFORMATION
  Report Type: Spontaneous
  Country: FR (occurrence: FR)
  Receive Date: 20130304
  Receipt Date: 20140606
  Transmission Date: 20141212
  Serious: Yes (Life-Threatening, Hospitalization, Other)
  Sender: FDA-Public Use
  Company Number: FR-JNJFOC-20130212718

PATIENT
  Age: 59 Year
  Sex: Male

DRUGS (14)
  1. XARELTO [Suspect]
     Indication: ARRHYTHMIA
     Route: 048
     Dates: start: 201208, end: 201301
  2. XARELTO [Suspect]
     Indication: ATRIAL FIBRILLATION
     Route: 048
     Dates: start: 201208, end: 201301
  3. XARELTO [Suspect]
     Indication: CEREBROVASCULAR ACCIDENT
     Route: 048
     Dates: start: 201208, end: 201301
  4. SPIRONOLACTONE [Concomitant]
     Route: 065
  5. FENOFIBRATE [Concomitant]
     Route: 065
  6. PROPRANOLOL [Concomitant]
     Route: 065
  7. ONGLYZA [Concomitant]
     Route: 065
  8. KARDEGIC [Concomitant]
     Route: 065
  9. ACARBOSE [Concomitant]
     Route: 065
  10. LANSOPRAZOLE [Concomitant]
     Route: 065
  11. TAMSULOSIN [Concomitant]
     Route: 065
  12. ALLOPURINOL [Concomitant]
     Route: 065
  13. AMIODARONE [Concomitant]
     Route: 065
  14. GLIMEPIRIDE [Concomitant]
     Route: 065

REACTIONS (2)
  - Shock haemorrhagic [Recovered/Resolved with Sequelae]
  - Rectal haemorrhage [Recovered/Resolved with Sequelae]
